FAERS Safety Report 8394854-4 (Version None)
Quarter: 2012Q2

REPORT INFORMATION
  Report Type: 
  Country: None (occurrence: None)
  Receive Date: 20120530
  Receipt Date: 20120524
  Transmission Date: 20120825
  Serious: No
  Sender: FDA-Public Use
  Company Number: US-PFIZER INC-2012126941

PATIENT
  Sex: Male
  Weight: 90.703 kg

DRUGS (8)
  1. ZYPREXA [Interacting]
     Indication: SLEEP DISORDER
     Dosage: 0.5 MG, 1X/DAY
  2. LYRICA [Suspect]
     Indication: COMPLEX REGIONAL PAIN SYNDROME
     Dosage: 100 MG, 3X/DAY
     Route: 048
     Dates: start: 20050201
  3. LYRICA [Interacting]
     Indication: PAIN
  4. KLONOPIN [Concomitant]
     Indication: PANIC ATTACK
     Dosage: UNK
  5. SODIUM HYALURONATE [Concomitant]
     Indication: ARTHRITIS
     Dosage: UNK, ONCE A WEEK FOR THREE WEEKS AFTER EVERY SIX MONTHS
     Route: 013
  6. LIPITOR [Concomitant]
     Dosage: 10 MG, UNK
  7. CELEXA [Concomitant]
     Indication: PANIC ATTACK
     Dosage: UNK
  8. LYRICA [Interacting]

REACTIONS (7)
  - DYSGEUSIA [None]
  - MALAISE [None]
  - HUNGER [None]
  - PAIN [None]
  - DRUG INTERACTION [None]
  - WEIGHT INCREASED [None]
  - NAUSEA [None]
